FAERS Safety Report 5678804-7 (Version None)
Quarter: 2008Q1

REPORT INFORMATION
  Report Type: 
  Country: None (occurrence: None)
  Receive Date: 20080321
  Receipt Date: 20080307
  Transmission Date: 20080703
  Serious: Yes (Hospitalization)
  Sender: FDA-Public Use
  Company Number: US015390

PATIENT
  Age: 18 Year
  Sex: Male
  Weight: 48.9885 kg

DRUGS (20)
  1. ACTIQ [Suspect]
     Indication: PELVIC PAIN
     Dosage: 800 UG BID BUCCAL
     Route: 002
     Dates: start: 20050101, end: 20050601
  2. ACTIQ [Suspect]
     Indication: PROCTALGIA
     Dosage: 800 UG BID BUCCAL
     Route: 002
     Dates: start: 20050101, end: 20050601
  3. ACTIQ [Suspect]
     Indication: PELVIC PAIN
     Dosage: 2400 UG QD BUCCAL
     Route: 002
     Dates: start: 20050622, end: 20050627
  4. ACTIQ [Suspect]
     Indication: PROCTALGIA
     Dosage: 2400 UG QD BUCCAL
     Route: 002
     Dates: start: 20050622, end: 20050627
  5. CLONAZEPAM [Concomitant]
  6. ACTIQ [Suspect]
     Indication: PELVIC PAIN
     Dosage: 1600 UG QD BUCCAL
     Route: 002
     Dates: start: 20050628, end: 20050702
  7. ACTIQ [Suspect]
     Indication: PROCTALGIA
     Dosage: 1600 UG QD BUCCAL
     Route: 002
     Dates: start: 20050628, end: 20050702
  8. ACTIQ [Suspect]
     Indication: PELVIC PAIN
     Dosage: 400 UG TID BUCCAL
     Route: 002
     Dates: start: 20050703, end: 20050707
  9. ACTIQ [Suspect]
     Indication: PROCTALGIA
     Dosage: 400 UG TID BUCCAL
     Route: 002
     Dates: start: 20050703, end: 20050707
  10. ACTIQ [Suspect]
     Indication: PROCTALGIA
     Dosage: 400 UG BID BUCCAL
     Route: 002
     Dates: start: 20050708, end: 20050712
  11. ACTIQ [Suspect]
     Indication: PROCTALGIA
     Dosage: 400 UG QD BUCCAL
     Route: 002
     Dates: start: 20050713, end: 20050715
  12. METHADONE HCL [Suspect]
     Indication: PAIN
     Dates: start: 20050101, end: 20050301
  13. METHADONE HCL [Suspect]
     Indication: PAIN
     Dosage: 30 MG QID
     Dates: start: 20050301
  14. METHADONE HCL [Suspect]
     Indication: PAIN
     Dosage: 20 MG QD
     Dates: end: 20050501
  15. METHADONE HCL [Suspect]
     Indication: PAIN
     Dosage: 15 MG DAILY
  16. METHADONE HCL [Suspect]
     Indication: PAIN
     Dosage: 10 MG DAILY
  17. METHADONE HCL [Suspect]
     Indication: PAIN
     Dosage: 5 MG DAILY
  18. METHADONE HCL [Suspect]
     Indication: PAIN
     Dosage: 5 MG DAILY
  19. DURAGESIC-25 [Suspect]
     Indication: PELVIC PAIN
     Dosage: 50 MG TID TRANSDERMAL
     Route: 062
     Dates: start: 20050601
  20. DURAGESIC-25 [Suspect]
     Indication: PROCTALGIA
     Dosage: 50 MG TID TRANSDERMAL
     Route: 062
     Dates: start: 20050601

REACTIONS (16)
  - ABDOMINAL PAIN [None]
  - ANXIETY [None]
  - DENTAL CARIES [None]
  - DEPRESSION [None]
  - DRUG DEPENDENCE [None]
  - DRUG WITHDRAWAL SYNDROME [None]
  - FATIGUE [None]
  - FORMICATION [None]
  - HYPERHIDROSIS [None]
  - INSOMNIA [None]
  - MALAISE [None]
  - PAIN [None]
  - REFUSAL OF TREATMENT BY PATIENT [None]
  - RHINORRHOEA [None]
  - SUICIDAL BEHAVIOUR [None]
  - TOOTH DECALCIFICATION [None]
